FAERS Safety Report 19561805 (Version 1)
Quarter: 2021Q3

REPORT INFORMATION
  Report Type: Spontaneous
  Country: US (occurrence: US)
  Receive Date: 20210716
  Receipt Date: 20210716
  Transmission Date: 20211014
  Serious: Yes (Other)
  Sender: FDA-Public Use
  Company Number: None

PATIENT
  Age: 46 Year
  Sex: Female
  Weight: 63 kg

DRUGS (1)
  1. NEUTROGENA BEACH DEFENSE SUNSCREEN [Suspect]
     Active Substance: AVOBENZONE\HOMOSALATE\OCTISALATE\OCTOCRYLENE
     Indication: PROPHYLAXIS AGAINST SOLAR RADIATION
     Dosage: QUANTITY:4 SPRAY(S);OTHER FREQUENCY:EVERY 80 MINUTES;?
     Route: 061
     Dates: start: 20210501, end: 20210710

REACTIONS (5)
  - Application site swelling [None]
  - Urticaria [None]
  - Application site erythema [None]
  - Application site pain [None]
  - Pruritus [None]

NARRATIVE: CASE EVENT DATE: 20210710
